FAERS Safety Report 11346800 (Version 3)
Quarter: 2015Q3

REPORT INFORMATION
  Report Type: Report from Study
  Country: US (occurrence: US)
  Receive Date: 20150806
  Receipt Date: 20150930
  Transmission Date: 20151125
  Serious: Yes (Hospitalization, Other)
  Sender: FDA-Public Use
  Company Number: US-ROCHE-1616671

PATIENT
  Age: 43 Year
  Sex: Female
  Weight: 57 kg

DRUGS (6)
  1. TRASTUZUMAB [Suspect]
     Active Substance: TRASTUZUMAB
     Indication: BREAST CANCER
     Dosage: OVER 90 MIN ON DAY 1
     Route: 042
     Dates: start: 20150210
  2. PERTUZUMAB [Suspect]
     Active Substance: PERTUZUMAB
     Indication: BREAST CANCER
     Dosage: OVER 60 MIN ON DAY 1
     Route: 042
     Dates: start: 20150210
  3. PERTUZUMAB [Suspect]
     Active Substance: PERTUZUMAB
     Dosage: MAINTAINANCE DOSE?TOTAL ADMINISTRED DOSE:420 MG?OVER 30-60 MIN ON DAY 1 Q3 WEEKS?LAST ADMINISTERED D
     Route: 042
     Dates: start: 20150303
  4. TRASTUZUMAB [Suspect]
     Active Substance: TRASTUZUMAB
     Dosage: MAINTAINANCE DOSE?TOTAL ADMINISTRED DOSE: 380 MG?OVER 30-60 MIN ON DAY 1 Q3WEEKS?LAST ADMINISTERED D
     Route: 042
     Dates: start: 20150303
  5. DOCETAXEL. [Suspect]
     Active Substance: DOCETAXEL
     Indication: BREAST CANCER
     Dosage: TOTAL ADMINISTRED DOSE: 125 MG?OVER 60 MIN ON DAY 1 ?LAST ADMINISTERED DATE: 28/APR/2015
     Route: 042
     Dates: start: 20150210
  6. CARBOPLATIN. [Suspect]
     Active Substance: CARBOPLATIN
     Indication: BREAST CANCER
     Dosage: TOTAL ADMINISTRED DOSE: 600 MG ?AUC=6 MG/ML/MIN IV OVER 30-60 MIN ON DAY 1 ?LAST ADMINISTERED DATE:
     Route: 042
     Dates: start: 20150210

REACTIONS (7)
  - Abdominal pain [Recovered/Resolved with Sequelae]
  - Dehydration [Recovering/Resolving]
  - Nausea [Recovering/Resolving]
  - Vomiting [Recovering/Resolving]
  - Hypokalaemia [Recovered/Resolved with Sequelae]
  - Hypokalaemia [Recovering/Resolving]
  - Diarrhoea [Recovering/Resolving]

NARRATIVE: CASE EVENT DATE: 20150330
